FAERS Safety Report 10101998 (Version 2)
Quarter: 2014Q2

REPORT INFORMATION
  Report Type: Spontaneous
  Country: GB (occurrence: GB)
  Receive Date: 20140424
  Receipt Date: 20140428
  Transmission Date: 20141212
  Serious: Yes (Other)
  Sender: FDA-Public Use
  Company Number: GB-MERCK-1404GBR011209

PATIENT
  Age: 49 Year
  Sex: Male
  Weight: 63.5 kg

DRUGS (2)
  1. MOMETASONE FUROATE [Suspect]
     Indication: NASAL CONGESTION
     Dosage: 2 DF, QD
     Route: 045
     Dates: start: 20140401
  2. ANALGESIC (UNSPECIFIED) [Concomitant]
     Dosage: PATCHES

REACTIONS (5)
  - Ocular discomfort [Recovered/Resolved]
  - Disturbance in attention [Recovered/Resolved]
  - Nausea [Recovered/Resolved]
  - Product substitution issue [Unknown]
  - Headache [Recovered/Resolved]
